FAERS Safety Report 12138480 (Version 3)
Quarter: 2016Q2

REPORT INFORMATION
  Report Type: Spontaneous
  Country: US (occurrence: US)
  Receive Date: 20160302
  Receipt Date: 20160503
  Transmission Date: 20160815
  Serious: No
  Sender: FDA-Public Use
  Company Number: US-ASTRAZENECA-2016SE17767

PATIENT
  Sex: Female

DRUGS (2)
  1. SYMBICORT [Suspect]
     Active Substance: BUDESONIDE\FORMOTEROL FUMARATE DIHYDRATE
     Indication: ASTHMA
     Dosage: 320 UG (160/4.5 MCG),IN THE MORNING
     Route: 055
  2. SYMBICORT [Suspect]
     Active Substance: BUDESONIDE\FORMOTEROL FUMARATE DIHYDRATE
     Indication: ASTHMA
     Dosage: 320 UG (160/4.5 MCG), 2 PUFFS, TWO TIMES A DAY
     Route: 055
     Dates: start: 2014

REACTIONS (9)
  - Hypophagia [Recovered/Resolved]
  - Muscle injury [Recovered/Resolved]
  - Device malfunction [Unknown]
  - Fibromyalgia [Unknown]
  - Intentional product use issue [Unknown]
  - Anxiety disorder [Unknown]
  - Ear pain [Recovered/Resolved]
  - Cough [Unknown]
  - Depression [Unknown]
